FAERS Safety Report 4619959-2 (Version None)
Quarter: 2005Q1

REPORT INFORMATION
  Report Type: 
  Country: None (occurrence: None)
  Receive Date: 20050328
  Receipt Date: 20050315
  Transmission Date: 20050727
  Serious: Yes (Hospitalization)
  Sender: FDA-Public Use
  Company Number: DE-ABBOTT-05P-062-0294169-00

PATIENT
  Age: 48 Year
  Sex: Male

DRUGS (10)
  1. ERGENYL CHRONO TABLETS [Suspect]
     Indication: SCHIZOAFFECTIVE DISORDER
     Route: 048
     Dates: start: 20000921, end: 20000921
  2. ERGENYL CHRONO TABLETS [Suspect]
     Indication: MANIA
     Route: 048
     Dates: start: 20000922, end: 20000922
  3. ERGENYL CHRONO TABLETS [Suspect]
     Route: 048
     Dates: start: 20001004, end: 20001004
  4. ERGENYL CHRONO TABLETS [Suspect]
     Route: 048
     Dates: start: 20001005, end: 20001006
  5. ERGENYL CHRONO TABLETS [Suspect]
     Route: 048
     Dates: start: 20001008, end: 20001008
  6. ERGENYL CHRONO TABLETS [Suspect]
  7. CHLORPROTHIXENE HYDROCHLORIDE [Suspect]
     Indication: SCHIZOAFFECTIVE DISORDER
     Route: 048
     Dates: start: 20000830, end: 20001006
  8. CHLORPROTHIXENE HYDROCHLORIDE [Suspect]
     Indication: MANIA
     Route: 048
     Dates: start: 20000830, end: 20001006
  9. RISPERIDONE [Concomitant]
     Indication: SCHIZOAFFECTIVE DISORDER
     Route: 048
     Dates: start: 20000924, end: 20000924
  10. RISPERIDONE [Concomitant]
     Indication: MANIA

REACTIONS (3)
  - CARDIOVASCULAR DISORDER [None]
  - DIZZINESS [None]
  - TACHYCARDIA [None]
